FAERS Safety Report 10883092 (Version 1)
Quarter: 2015Q1

REPORT INFORMATION
  Report Type: Spontaneous
  Country: US (occurrence: None)
  Receive Date: 20150226
  Receipt Date: 20150226
  Transmission Date: 20150721
  Serious: Yes (Hospitalization)
  Sender: FDA-Public Use
  Company Number: None

PATIENT
  Age: 68 Year
  Sex: Female
  Weight: 53.07 kg

DRUGS (2)
  1. B6VITAMINS [Concomitant]
  2. PROTONIX [Suspect]
     Active Substance: PANTOPRAZOLE SODIUM
     Indication: GASTROOESOPHAGEAL REFLUX DISEASE
     Dosage: 1PILL PER DAY ONCE DAILY TAKEN BY MOUTH
     Route: 048

REACTIONS (6)
  - Malaise [None]
  - Anxiety [None]
  - Depression [None]
  - Weight decreased [None]
  - Nausea [None]
  - Chills [None]
